FAERS Safety Report 6956707-5 (Version None)
Quarter: 2010Q3

REPORT INFORMATION
  Report Type: 
  Country: None (occurrence: None)
  Receive Date: 20100830
  Receipt Date: 20100816
  Transmission Date: 20110219
  Serious: Yes (Hospitalization, Other)
  Sender: FDA-Public Use
  Company Number: PHEH2006US15107

PATIENT
  Sex: Male

DRUGS (12)
  1. ZOMETA [Suspect]
     Indication: MULTIPLE MYELOMA
     Dates: start: 20030516
  2. AREDIA [Suspect]
  3. AUGMENTIN '125' [Concomitant]
  4. PERIDEX [Concomitant]
  5. REVLIMID [Concomitant]
  6. LYRICA [Concomitant]
  7. TYLENOL-500 [Concomitant]
  8. DOXIL [Concomitant]
  9. VINCRISTINE [Concomitant]
  10. DEXAMETHASONE [Concomitant]
  11. MELPHALAN [Concomitant]
  12. TRANSFUSIONS [Concomitant]

REACTIONS (33)
  - ABDOMINAL PAIN [None]
  - ANXIETY [None]
  - APLASTIC ANAEMIA [None]
  - ASTHENIA [None]
  - ATRIOVENTRICULAR BLOCK FIRST DEGREE [None]
  - BONE DISORDER [None]
  - BRADYCARDIA [None]
  - CONSTIPATION [None]
  - DECREASED APPETITE [None]
  - DECREASED INTEREST [None]
  - DENTAL FISTULA [None]
  - DIASTOLIC DYSFUNCTION [None]
  - DRY MOUTH [None]
  - EMOTIONAL DISTRESS [None]
  - GENERAL PHYSICAL HEALTH DETERIORATION [None]
  - JAW DISORDER [None]
  - LEFT ATRIAL DILATATION [None]
  - MITRAL VALVE INCOMPETENCE [None]
  - NAUSEA [None]
  - NORMOCHROMIC NORMOCYTIC ANAEMIA [None]
  - ORTHOSTATIC HYPOTENSION [None]
  - OSTEONECROSIS OF JAW [None]
  - PAIN [None]
  - POLLAKIURIA [None]
  - STEM CELL TRANSPLANT [None]
  - STOMATITIS [None]
  - TOOTH ABSCESS [None]
  - TOOTH EXTRACTION [None]
  - TOOTH INFECTION [None]
  - TRICUSPID VALVE INCOMPETENCE [None]
  - VOMITING [None]
  - WEIGHT DECREASED [None]
  - WOUND TREATMENT [None]
